FAERS Safety Report 24029257 (Version 1)
Quarter: 2024Q2

REPORT INFORMATION
  Report Type: Spontaneous
  Country: US (occurrence: None)
  Receive Date: 20240627
  Receipt Date: 20240627
  Transmission Date: 20240716
  Serious: Yes (Hospitalization)
  Sender: FDA-Public Use
  Company Number: None

PATIENT
  Age: 72 Year
  Sex: Female

DRUGS (2)
  1. TACROLIMUS [Suspect]
     Active Substance: TACROLIMUS
     Indication: Heart transplant
     Dosage: OTHER QUANTITY : 1MG QAM AND 2MG GP;?
     Dates: start: 20230516
  2. MYCOPHENOLIC ACID [Suspect]
     Active Substance: MYCOPHENOLIC ACID
     Indication: Heart transplant
     Dates: start: 20230516

REACTIONS (3)
  - Herpes zoster [None]
  - Immunodeficiency [None]
  - Renal transplant [None]

NARRATIVE: CASE EVENT DATE: 20240627
